FAERS Safety Report 11211587 (Version 1)
Quarter: 2015Q2

REPORT INFORMATION
  Report Type: Report from Study
  Country: GR (occurrence: GR)
  Receive Date: 20150623
  Receipt Date: 20150623
  Transmission Date: 20150821
  Serious: Yes (Other)
  Sender: FDA-Public Use
  Company Number: GR-ROCHE-1597481

PATIENT

DRUGS (3)
  1. TEMOZOLOMIDE. [Suspect]
     Active Substance: TEMOZOLOMIDE
     Indication: GLIOBLASTOMA
     Route: 065
  2. RINDOPEPIMUT [Suspect]
     Active Substance: RINDOPEPIMUT
     Indication: GLIOBLASTOMA
     Route: 023
  3. BEVACIZUMAB [Suspect]
     Active Substance: BEVACIZUMAB
     Indication: GLIOBLASTOMA
     Route: 065

REACTIONS (1)
  - Brain oedema [Unknown]
